FAERS Safety Report 8983010 (Version 1)
Quarter: 2012Q4

REPORT INFORMATION
  Report Type: 
  Country: GB (occurrence: GB)
  Receive Date: 20121224
  Receipt Date: 20121224
  Transmission Date: 20130627
  Serious: Yes (Hospitalization)
  Sender: FDA-Public Use
  Company Number: GB-UCBSA-073583

PATIENT
  Age: 55 Year
  Sex: Male
  Weight: 89.79 kg

DRUGS (5)
  1. KEPPRA [Suspect]
     Route: 048
  2. BEVACIZUMAB [Suspect]
     Indication: GLIOBLASTOMA MULTIFORME
     Route: 042
     Dates: start: 20081007, end: 20081028
  3. VELCADE [Suspect]
     Indication: GLIOBLASTOMA MULTIFORME
     Dosage: DOSE: 5.3 MG
     Route: 042
     Dates: start: 20081007, end: 20081107
  4. DILANTIN [Concomitant]
     Route: 048
  5. LYRICA [Concomitant]
     Route: 048

REACTIONS (3)
  - Abdominal pain [Recovered/Resolved]
  - Nausea [Recovered/Resolved]
  - Vomiting [Recovered/Resolved]
